FAERS Safety Report 6565969-8 (Version None)
Quarter: 2010Q1

REPORT INFORMATION
  Report Type: 
  Country: None (occurrence: None)
  Receive Date: 20100129
  Receipt Date: 20100129
  Transmission Date: 20100710
  Serious: Yes (Hospitalization)
  Sender: FDA-Public Use
  Company Number: None

PATIENT
  Age: 78 Year
  Sex: Male
  Weight: 43 kg

DRUGS (2)
  1. ASPIRIN [Suspect]
     Dosage: 81 MG EVERY DAY PO
     Route: 048
     Dates: start: 20050815
  2. NAPROXEN [Suspect]
     Indication: PAIN
     Dosage: 375 MG BID PO
     Route: 048
     Dates: start: 20070509

REACTIONS (1)
  - GASTROINTESTINAL HAEMORRHAGE [None]
